FAERS Safety Report 24910118 (Version 1)
Quarter: 2025Q1

REPORT INFORMATION
  Report Type: Spontaneous
  Country: US (occurrence: US)
  Receive Date: 20250131
  Receipt Date: 20250131
  Transmission Date: 20250409
  Serious: Yes (Other)
  Sender: PRAGMA PHARMACEUTICALS
  Company Number: US-PRAGMA-2025-US-004557

PATIENT
  Age: 61 Year
  Sex: Female

DRUGS (1)
  1. TRAZODONE [Suspect]
     Active Substance: TRAZODONE HYDROCHLORIDE
     Indication: Product used for unknown indication
     Route: 048

REACTIONS (3)
  - Dermatitis bullous [Unknown]
  - Necrosis [Unknown]
  - Intentional product misuse [Unknown]
